FAERS Safety Report 7245339-X (Version None)
Quarter: 2011Q1

REPORT INFORMATION
  Report Type: 
  Country: None (occurrence: None)
  Receive Date: 20110126
  Receipt Date: 20110119
  Transmission Date: 20110831
  Serious: Yes (Other)
  Sender: FDA-Public Use
  Company Number: FR-ROCHE-754506

PATIENT
  Sex: Female
  Weight: 63 kg

DRUGS (11)
  1. TOCILIZUMAB [Suspect]
     Indication: RHEUMATOID ARTHRITIS
     Route: 042
     Dates: start: 20100127, end: 20100225
  2. PREDNISONE [Suspect]
     Route: 065
     Dates: start: 19950101
  3. KETOPROFEN [Concomitant]
     Dates: start: 19990101
  4. ACETAMINOPHEN [Suspect]
     Route: 065
     Dates: start: 20080701
  5. METHOTREXATE [Suspect]
     Route: 065
     Dates: start: 19990101
  6. TRAMADOL [Concomitant]
     Dates: start: 20080701
  7. BROMAZEPAM [Concomitant]
     Dates: start: 20060101
  8. GOLD SALTS NOS [Concomitant]
     Route: 065
     Dates: start: 19940101
  9. TOCILIZUMAB [Suspect]
     Route: 042
     Dates: start: 20100626
  10. SOTALOL [Concomitant]
     Dates: start: 20070101
  11. ESOMEPRAZOLE [Concomitant]
     Dates: start: 20080101

REACTIONS (1)
  - ANAL CANCER [None]
